FAERS Safety Report 23435695 (Version 1)
Quarter: 2024Q1

REPORT INFORMATION
  Report Type: Spontaneous
  Country: US (occurrence: US)
  Receive Date: 20240124
  Receipt Date: 20240124
  Transmission Date: 20240409
  Serious: No
  Sender: FDA-Public Use
  Company Number: US-SUN PHARMACEUTICAL INDUSTRIES LTD-2023R1-387499

PATIENT
  Age: 67 Year
  Sex: Male

DRUGS (1)
  1. LEVULAN KERASTICK [Suspect]
     Active Substance: AMINOLEVULINIC ACID HYDROCHLORIDE
     Indication: Actinic keratosis
     Dosage: UNK, ONCE
     Route: 061
     Dates: start: 20230320, end: 20230320

REACTIONS (5)
  - Eye irritation [Recovering/Resolving]
  - Superficial injury of eye [Recovering/Resolving]
  - Dry eye [Recovering/Resolving]
  - Ocular hyperaemia [Recovering/Resolving]
  - Eye disorder [Recovering/Resolving]

NARRATIVE: CASE EVENT DATE: 20230320
